FAERS Safety Report 4508032-X (Version None)
Quarter: 2004Q4

REPORT INFORMATION
  Report Type: 
  Country: None (occurrence: None)
  Receive Date: 20041122
  Receipt Date: 20041122
  Transmission Date: 20050328
  Serious: Yes (Hospitalization)
  Sender: FDA-Public Use
  Company Number: None

PATIENT
  Age: 78 Year
  Sex: Male
  Weight: 80 kg

DRUGS (1)
  1. ZOSYN [Suspect]
     Dosage: 3.375 GM Q 6 HOURS INTRAVENOU
     Route: 042

REACTIONS (1)
  - CLOSTRIDIUM COLITIS [None]
